FAERS Safety Report 23307999 (Version 1)
Quarter: 2023Q4

REPORT INFORMATION
  Report Type: Spontaneous
  Country: US (occurrence: US)
  Receive Date: 20231218
  Receipt Date: 20231218
  Transmission Date: 20240110
  Serious: No
  Sender: FDA-Public Use
  Company Number: US-BEH-2023166282

PATIENT
  Sex: Female

DRUGS (1)
  1. HIZENTRA [Suspect]
     Active Substance: HUMAN IMMUNOGLOBULIN G
     Indication: Asthma
     Dosage: 18 GRAM, QW
     Route: 058

REACTIONS (8)
  - Nasal congestion [Unknown]
  - Cough [Unknown]
  - Illness [Unknown]
  - Hypophagia [Unknown]
  - Nausea [Unknown]
  - No adverse event [Unknown]
  - Therapy interrupted [Unknown]
  - Off label use [Unknown]
